FAERS Safety Report 18545580 (Version 1)
Quarter: 2020Q4

REPORT INFORMATION
  Report Type: Spontaneous
  Country: US (occurrence: US)
  Receive Date: 20201125
  Receipt Date: 20201125
  Transmission Date: 20210114
  Serious: Yes (Other)
  Sender: FDA-Public Use
  Company Number: US-AMGEN-USASP2020189573

PATIENT
  Age: 24 Year
  Sex: Male

DRUGS (7)
  1. BUSULFAN. [Concomitant]
     Active Substance: BUSULFAN
     Dosage: 0.8 MILLIGRAM/KILOGRAM, Q6H DAY -8 THROUGH -4
     Route: 042
  2. AMINOCAPROIC ACID. [Concomitant]
     Active Substance: AMINOCAPROIC ACID
     Dosage: UNK
     Route: 065
  3. RITUXIMAB. [Concomitant]
     Active Substance: RITUXIMAB
     Dosage: 375 MILLIGRAM/SQ. METER IV D + 17, 64,72, AND 82
     Route: 042
  4. TACROLIMUS. [Concomitant]
     Active Substance: TACROLIMUS
     Indication: PROPHYLAXIS
     Dosage: UNK
     Route: 065
  5. METHOTREXATE. [Concomitant]
     Active Substance: METHOTREXATE
     Indication: PROPHYLAXIS
     Dosage: UNK
     Route: 065
  6. FILGRASTIM [Suspect]
     Active Substance: FILGRASTIM
     Indication: BONE MARROW TRANSPLANT
     Dosage: UNK
     Route: 065
  7. CYCLOPHOSPHAMIDE. [Concomitant]
     Active Substance: CYCLOPHOSPHAMIDE
     Dosage: 60 MILLIGRAM/KILOGRAM DAILY
     Route: 042

REACTIONS (10)
  - Mucocutaneous haemorrhage [Unknown]
  - Thrombocytopenia [Unknown]
  - Retinal haemorrhage [Unknown]
  - Scleral haemorrhage [Unknown]
  - Purpura [Recovered/Resolved]
  - Hypoxia [Recovered/Resolved]
  - Off label use [Unknown]
  - Graft versus host disease [Unknown]
  - Epistaxis [Unknown]
  - Lung infiltration [Recovered/Resolved]
